FAERS Safety Report 6344219-1 (Version None)
Quarter: 2009Q3

REPORT INFORMATION
  Report Type: 
  Country: None (occurrence: None)
  Receive Date: 20090903
  Receipt Date: 20090903
  Transmission Date: 20100115
  Serious: Yes (Hospitalization)
  Sender: FDA-Public Use
  Company Number: None

PATIENT
  Sex: Male
  Weight: 76.2043 kg

DRUGS (1)
  1. PEGASYS [Suspect]
     Indication: HEPATITIS C
     Dosage: 90 MCG -0.25ML- WEEKLY SQ
     Route: 058
     Dates: start: 20090803, end: 20090903

REACTIONS (9)
  - CRYPTOCOCCOSIS [None]
  - DIPLOPIA [None]
  - DISEASE PROGRESSION [None]
  - FATIGUE [None]
  - HEADACHE [None]
  - LUMBAR PUNCTURE ABNORMAL [None]
  - PYREXIA [None]
  - TOXOPLASMOSIS [None]
  - VISION BLURRED [None]
